FAERS Safety Report 18632162 (Version 2)
Quarter: 2020Q4

REPORT INFORMATION
  Report Type: Report from Study
  Country: None (occurrence: IE)
  Receive Date: 20201217
  Receipt Date: 20201221
  Transmission Date: 20210114
  Serious: Yes (Other)
  Sender: FDA-Public Use
  Company Number: IE-ABBVIE-20K-229-3695345-00

PATIENT
  Age: 76 Year
  Sex: Female

DRUGS (1)
  1. HUMIRA [Suspect]
     Active Substance: ADALIMUMAB
     Indication: CROHN^S DISEASE
     Route: 058
     Dates: start: 20160726

REACTIONS (2)
  - Localised infection [Recovering/Resolving]
  - Onychoclasis [Recovering/Resolving]

NARRATIVE: CASE EVENT DATE: 20201207
